FAERS Safety Report 18222789 (Version 4)
Quarter: 2021Q4

REPORT INFORMATION
  Report Type: Spontaneous
  Country: US (occurrence: US)
  Receive Date: 20200902
  Receipt Date: 20211130
  Transmission Date: 20220303
  Serious: No
  Sender: FDA-Public Use
  Company Number: US-BIOGEN-2020BI00917174

PATIENT
  Age: 51 Year
  Sex: Female

DRUGS (1)
  1. TYSABRI [Suspect]
     Active Substance: NATALIZUMAB
     Indication: Relapsing-remitting multiple sclerosis
     Route: 042
     Dates: start: 20200527, end: 20200917

REACTIONS (15)
  - Paraesthesia [Unknown]
  - Infusion site haemorrhage [Unknown]
  - Abdominal pain upper [Unknown]
  - Painful respiration [Unknown]
  - Blood pressure increased [Unknown]
  - Joint stiffness [Unknown]
  - Pain [Unknown]
  - Blood pressure decreased [Recovered/Resolved]
  - Lip swelling [Unknown]
  - Muscle spasms [Recovered/Resolved]
  - Back pain [Recovered/Resolved]
  - Infusion site bruising [Unknown]
  - Hypersensitivity [Unknown]
  - Chills [Recovered/Resolved]
  - Dyspnoea [Recovered/Resolved]

NARRATIVE: CASE EVENT DATE: 20200820
